FAERS Safety Report 9024755 (Version 5)
Quarter: 2013Q3

REPORT INFORMATION
  Report Type: Spontaneous
  Country: US (occurrence: None)
  Receive Date: 20121231
  Receipt Date: 20130815
  Transmission Date: 20140515
  Serious: Yes (Life-Threatening, Hospitalization, Other)
  Sender: FDA-Public Use
  Company Number: ADR-2012-01821

PATIENT
  Sex: Male

DRUGS (3)
  1. LIORESAL INTRATHECAL [Suspect]
     Indication: MUSCLE SPASTICITY
     Dosage: MCG/DAY
  2. CLONIDINE [Concomitant]
  3. BUPIVACAINE [Concomitant]

REACTIONS (19)
  - Drug withdrawal syndrome [None]
  - Overdose [None]
  - Diplopia [None]
  - Somnolence [None]
  - Depressed level of consciousness [None]
  - Device malfunction [None]
  - Unresponsive to stimuli [None]
  - Nausea [None]
  - Vomiting [None]
  - Paraesthesia [None]
  - Dehydration [None]
  - Somnolence [None]
  - Headache [None]
  - Asthenia [None]
  - Asthenia [None]
  - Urinary tract infection [None]
  - Feeling of body temperature change [None]
  - Malaise [None]
  - Lethargy [None]
